FAERS Safety Report 8291381-X (Version None)
Quarter: 2012Q2

REPORT INFORMATION
  Report Type: 
  Country: None (occurrence: None)
  Receive Date: 20120417
  Receipt Date: 20120410
  Transmission Date: 20120825
  Serious: Yes (Hospitalization)
  Sender: FDA-Public Use
  Company Number: US-GLAXOSMITHKLINE-A0973886A

PATIENT
  Age: 37 Year
  Sex: Male
  Weight: 99.8 kg

DRUGS (1)
  1. FLOLAN [Suspect]
     Indication: PRODUCT USED FOR UNKNOWN INDICATION
     Dosage: 35NGKM SEE DOSAGE TEXT
     Route: 042
     Dates: start: 20120312

REACTIONS (1)
  - HOSPITALISATION [None]
